FAERS Safety Report 14543693 (Version 1)
Quarter: 2018Q1

REPORT INFORMATION
  Report Type: Spontaneous
  Country: NG (occurrence: NG)
  Receive Date: 20180216
  Receipt Date: 20180216
  Transmission Date: 20180509
  Serious: Yes (Other)
  Sender: FDA-Public Use
  Company Number: PHHY2018NG023658

PATIENT
  Age: 41 Year
  Sex: Female

DRUGS (5)
  1. PROMETAZIN [Suspect]
     Active Substance: PROMETHAZINE HYDROCHLORIDE
     Indication: PAIN
     Route: 065
  2. ARTANE [Suspect]
     Active Substance: TRIHEXYPHENIDYL HYDROCHLORIDE
     Indication: PAIN
     Route: 065
  3. PIRITON [Suspect]
     Active Substance: CHLORPHENIRAMINE MALEATE
     Indication: PAIN
     Route: 065
  4. TEGRETOL [Suspect]
     Active Substance: CARBAMAZEPINE
     Indication: PRODUCT USED FOR UNKNOWN INDICATION
     Route: 065
  5. DIAZEPAM. [Suspect]
     Active Substance: DIAZEPAM
     Indication: PAIN
     Route: 065

REACTIONS (8)
  - Tongue movement disturbance [Unknown]
  - Depression [Unknown]
  - Drug dependence [Unknown]
  - Asthenia [Unknown]
  - Anxiety [Unknown]
  - Somatic symptom disorder [Unknown]
  - Drug abuse [Unknown]
  - Somnolence [Unknown]
